FAERS Safety Report 9163543 (Version 2)
Quarter: 2013Q2

REPORT INFORMATION
  Report Type: Other
  Country: ES (occurrence: ES)
  Receive Date: 20130314
  Receipt Date: 20130426
  Transmission Date: 20140414
  Serious: Yes (Hospitalization, Other)
  Sender: FDA-Public Use
  Company Number: ES-NAPPMUNDI-DEU-2013-0010814

PATIENT
  Age: 55 Year
  Sex: Female

DRUGS (14)
  1. NON-PMN MORPHINE SULFATE [Suspect]
     Indication: BONE PAIN
     Dosage: 450 MG, UNK
     Route: 051
  2. NON-PMN MORPHINE SULFATE [Suspect]
     Indication: NEURALGIA
  3. MORPHINE SULFATE [Suspect]
     Indication: BONE PAIN
     Route: 048
  4. MORPHINE SULFATE [Suspect]
     Indication: NEURALGIA
  5. TRAMADOL HCL [Suspect]
     Indication: BONE PAIN
  6. TRAMADOL HCL [Suspect]
     Indication: NEURALGIA
  7. OXYCODONE HCL PR TABLET [Suspect]
     Indication: BONE PAIN
     Dosage: 320 MG, UNK
     Route: 048
  8. OXYCODONE HCL PR TABLET [Suspect]
     Indication: NEURALGIA
  9. NON-PMN BUPRENORPHINE [Suspect]
     Indication: BONE PAIN
     Dosage: UNK
     Route: 062
  10. NON-PMN BUPRENORPHINE [Suspect]
     Indication: NEURALGIA
  11. FENTANYL [Suspect]
     Indication: BONE PAIN
     Route: 062
  12. FENTANYL [Suspect]
     Indication: NEURALGIA
  13. LAXATIVES [Concomitant]
     Indication: CONSTIPATION PROPHYLAXIS
  14. ENEMA                              /01318702/ [Concomitant]
     Indication: CONSTIPATION PROPHYLAXIS
     Route: 065

REACTIONS (4)
  - Colonic pseudo-obstruction [Recovered/Resolved]
  - Constipation [Recovered/Resolved]
  - Haemorrhoids [Recovering/Resolving]
  - Inadequate analgesia [Unknown]
